FAERS Safety Report 8761380 (Version 2)
Quarter: 2012Q4

REPORT INFORMATION
  Report Type: 
  Country: JP (occurrence: JP)
  Receive Date: 20120829
  Receipt Date: 20121004
  Transmission Date: 20130627
  Serious: Yes (Other)
  Sender: FDA-Public Use
  Company Number: JP-PFIZER INC-2012205597

PATIENT
  Age: 62 Year
  Sex: Male

DRUGS (11)
  1. CONSTAN [Suspect]
     Dosage: UNK
     Route: 048
  2. SULPIRIDE [Concomitant]
     Dosage: 100 mg, UNK
     Route: 048
  3. SULPIRIDE [Concomitant]
     Dosage: 50 mg, UNK
  4. ETIZOLAM [Concomitant]
     Dosage: UNK
     Route: 048
  5. MS CONTIN [Concomitant]
     Dosage: 20 mg, per day
  6. MS CONTIN [Concomitant]
     Dosage: 40 mg, per day
  7. MS CONTIN [Concomitant]
     Dosage: 30 mg, per day
  8. LOXOPROFEN SODIUM [Concomitant]
     Dosage: UNK
  9. OPSO [Concomitant]
     Dosage: 5 mg, UNK
     Route: 048
  10. KADIAN [Concomitant]
     Dosage: 40 mg, per day
  11. DOMPERIDONE [Concomitant]
     Dosage: UNK

REACTIONS (2)
  - Extrapyramidal disorder [Unknown]
  - Initial insomnia [Unknown]
